FAERS Safety Report 4916927-8 (Version None)
Quarter: 2006Q1

REPORT INFORMATION
  Report Type: 
  Country: None (occurrence: None)
  Receive Date: 20060221
  Receipt Date: 20060209
  Transmission Date: 20060701
  Serious: Yes (Other)
  Sender: FDA-Public Use
  Company Number: ES-JNJFOC-20060202683

PATIENT
  Sex: Male

DRUGS (5)
  1. REMICADE [Suspect]
     Route: 042
  2. REMICADE [Suspect]
     Dosage: EIGHTH INFUSION.
     Route: 042
  3. REMICADE [Suspect]
     Route: 042
  4. POLARAMINE [Concomitant]
  5. URBASON [Concomitant]

REACTIONS (5)
  - FEELING COLD [None]
  - INFUSION RELATED REACTION [None]
  - MALAISE [None]
  - NAUSEA [None]
  - WHEEZING [None]
